FAERS Safety Report 16000987 (Version 4)
Quarter: 2019Q2

REPORT INFORMATION
  Report Type: Spontaneous
  Country: ES (occurrence: ES)
  Receive Date: 20190225
  Receipt Date: 20190502
  Transmission Date: 20190711
  Serious: Yes (Death, Life-Threatening, Hospitalization, Congenital Anomaly)
  Sender: FDA-Public Use
  Company Number: ES-PROVELL PHARMACEUTICALS-2063167

PATIENT
  Sex: Male

DRUGS (4)
  1. PROGEFFIK [Suspect]
     Active Substance: PROGESTERONE
  2. EUTHYROX [Suspect]
     Active Substance: LEVOTHYROXINE SODIUM
     Indication: HYPOTHYROIDISM
  3. NERVOBION [CYANOCOBALAMIN\PYRIDOXINE\THIAMINE] [Suspect]
     Active Substance: CYANOCOBALAMIN\PYRIDOXINE\THIAMINE
  4. ACFOL [Suspect]
     Active Substance: FOLIC ACID

REACTIONS (19)
  - Metabolic acidosis [Fatal]
  - Congenital renal disorder [Unknown]
  - Device related infection [Unknown]
  - Adrenal haemorrhage [Fatal]
  - Hyperglycaemia [Fatal]
  - Umbilical cord haemorrhage [Unknown]
  - Congenital hepatomegaly [Unknown]
  - Acute kidney injury [Fatal]
  - Pneumonia [Fatal]
  - Hyponatraemia [Fatal]
  - Foetal exposure during pregnancy [Recovered/Resolved]
  - Skin laceration [Fatal]
  - Cardio-respiratory arrest neonatal [Recovered/Resolved]
  - Encephalopathy neonatal [Fatal]
  - Gallbladder anomaly congenital [Unknown]
  - Generalised tonic-clonic seizure [Fatal]
  - Erythema [Unknown]
  - Coagulopathy [Fatal]
  - Hypothermia [Fatal]

NARRATIVE: CASE EVENT DATE: 2008
